FAERS Safety Report 15540687 (Version 1)
Quarter: 2018Q4

REPORT INFORMATION
  Report Type: Spontaneous
  Country: US (occurrence: US)
  Receive Date: 20181016
  Receipt Date: 20181016
  Transmission Date: 20190205
  Serious: No
  Sender: FDA-Public Use
  Company Number: None

PATIENT
  Age: 51 Year
  Sex: Female

DRUGS (7)
  1. CYCLOSPORINE CAP 25MG MOD [Suspect]
     Active Substance: CYCLOSPORINE
     Indication: ACUTE SINUSITIS
     Dates: start: 201802
  2. CYCLOSPORINE CAP 25MG MOD [Suspect]
     Active Substance: CYCLOSPORINE
     Indication: DERMATITIS ATOPIC
  3. CYCLOSPORINE CAP 25MG MOD [Suspect]
     Active Substance: CYCLOSPORINE
     Indication: DERMATITIS
  4. DUPIXENT [Concomitant]
     Active Substance: DUPILUMAB
  5. CYCLOSPORINE CAP 25MG MOD [Suspect]
     Active Substance: CYCLOSPORINE
     Indication: DERMATITIS ATOPIC
  6. LEXAPRO ESTRADIOL [Concomitant]
  7. CYCLOSPORINE CAP 25MG MOD [Suspect]
     Active Substance: CYCLOSPORINE
     Indication: PRURITUS

REACTIONS (1)
  - Fatigue [None]

NARRATIVE: CASE EVENT DATE: 20181015
